FAERS Safety Report 6596094-8 (Version None)
Quarter: 2010Q1

REPORT INFORMATION
  Report Type: 
  Country: None (occurrence: None)
  Receive Date: 20100223
  Receipt Date: 20100215
  Transmission Date: 20100710
  Serious: Yes (Death, Hospitalization)
  Sender: FDA-Public Use
  Company Number: JP-PFIZER INC-2010019961

PATIENT
  Age: 57 Year
  Sex: Male

DRUGS (8)
  1. NELFINAVIR MESILATE [Suspect]
     Indication: HIV INFECTION
     Dosage: 2500MG/ DAY
     Route: 048
     Dates: start: 20020223, end: 20090202
  2. LAMIVUDINE [Suspect]
     Indication: HIV INFECTION
     Dosage: 300MG/ DAY
     Route: 048
     Dates: start: 20020223, end: 20090202
  3. ABACAVIR [Suspect]
     Indication: HIV INFECTION
     Dosage: 600MG/ DAY
     Route: 048
     Dates: start: 20020223, end: 20090202
  4. IMIPRAMINE HYDROCHLORIDE [Concomitant]
     Dosage: UNK
     Route: 048
     Dates: end: 20090202
  5. CLONAZEPAM [Concomitant]
     Dosage: UNK
     Route: 048
     Dates: end: 20090202
  6. CARBAMAZEPINE [Concomitant]
     Dosage: UNK
     Route: 048
     Dates: end: 20090202
  7. ALLOPURINOL [Concomitant]
     Dosage: UNK
     Route: 048
     Dates: start: 20090202
  8. PARACETAMOL [Concomitant]
     Dosage: UNK
     Dates: start: 20080709

REACTIONS (6)
  - ABDOMINAL PAIN UPPER [None]
  - BACK PAIN [None]
  - CONDITION AGGRAVATED [None]
  - DEATH [None]
  - GENERAL PHYSICAL HEALTH DETERIORATION [None]
  - INFLAMMATION [None]
